FAERS Safety Report 8608422 (Version 4)
Quarter: 2014Q1

REPORT INFORMATION
  Report Type: Spontaneous
  Country: US (occurrence: US)
  Receive Date: 20120611
  Receipt Date: 20140114
  Transmission Date: 20141002
  Serious: Yes (Hospitalization, Disabling, Other)
  Sender: FDA-Public Use
  Company Number: US-ASTRAZENECA-2012SE36361

PATIENT
  Age: 664 Month
  Sex: Female
  Weight: 67.1 kg

DRUGS (10)
  1. NEXIUM [Suspect]
     Indication: GASTROOESOPHAGEAL REFLUX DISEASE
     Dosage: ONES A DAY NOW TAKING TWICE A DAY
     Route: 048
     Dates: start: 20050520
  2. NEXIUM [Suspect]
     Indication: GASTRIC DISORDER
     Dosage: ONES A DAY NOW TAKING TWICE A DAY
     Route: 048
     Dates: start: 20050520
  3. NEXIUM [Suspect]
     Indication: GASTROOESOPHAGEAL REFLUX DISEASE
     Route: 048
     Dates: start: 20110306
  4. NEXIUM [Suspect]
     Indication: GASTRIC DISORDER
     Route: 048
     Dates: start: 20110306
  5. ZANTAC [Concomitant]
     Indication: GASTRIC DISORDER
  6. LOSARTAN [Concomitant]
     Indication: BLOOD PRESSURE
  7. IRON MEDS [Concomitant]
  8. ULTRAM [Concomitant]
     Route: 048
     Dates: start: 20110306
  9. CALCIUM [Concomitant]
     Dates: start: 20110210
  10. PREVACID [Concomitant]
     Dosage: DAILY
     Dates: start: 20121130

REACTIONS (15)
  - Dyspnoea [Unknown]
  - Obstructive airways disorder [Unknown]
  - Haemorrhage [Unknown]
  - Osteoporosis [Unknown]
  - Bone density decreased [Unknown]
  - Foot fracture [Unknown]
  - Multiple fractures [Unknown]
  - Bone pain [Unknown]
  - Arthropathy [Unknown]
  - Arthritis [Unknown]
  - Rheumatoid arthritis [Unknown]
  - Rotator cuff syndrome [Unknown]
  - Limb injury [Unknown]
  - Osteopenia [Unknown]
  - Osteoarthritis [Unknown]
